FAERS Safety Report 17121491 (Version 1)
Quarter: 2019Q4

REPORT INFORMATION
  Report Type: Spontaneous
  Country: US (occurrence: US)
  Receive Date: 20191205
  Receipt Date: 20191205
  Transmission Date: 20200122
  Serious: Yes (Hospitalization)
  Sender: FDA-Public Use
  Company Number: None

PATIENT
  Age: 12 Year
  Sex: Male
  Weight: 38 kg

DRUGS (3)
  1. OCTAGAM IMMUNE GLOBULIN (HUMAN) [Suspect]
     Active Substance: HUMAN IMMUNOGLOBULIN G
     Indication: IMMUNE SYSTEM DISORDER
     Dosage: ?          OTHER FREQUENCY:2 DAYS Q 2-3 MONTH;?
     Route: 042
     Dates: start: 20191023, end: 20191114
  2. BENADRYL 40MG IVP [Concomitant]
     Dates: start: 20191023, end: 20191023
  3. ZOFRAN 4MG IV [Concomitant]
     Dates: start: 20191023, end: 20191023

REACTIONS (3)
  - Odynophagia [None]
  - Erythema [None]
  - Infusion related reaction [None]

NARRATIVE: CASE EVENT DATE: 20191023
